FAERS Safety Report 5418641-1 (Version None)
Quarter: 2007Q3

REPORT INFORMATION
  Report Type: 
  Country: None (occurrence: None)
  Receive Date: 20070817
  Receipt Date: 20070807
  Transmission Date: 20080115
  Serious: Yes (Life-Threatening)
  Sender: FDA-Public Use
  Company Number: JP-PFIZER INC-2007062573

PATIENT
  Sex: Female

DRUGS (8)
  1. SOLU-CORTEF [Suspect]
     Indication: ASTHMA
     Dosage: DAILY DOSE:300MG-FREQ:FREQUENCY: QD
     Route: 042
     Dates: start: 20070714, end: 20070718
  2. NEOPHYLLIN [Concomitant]
     Route: 042
     Dates: start: 20070714, end: 20070718
  3. MUCOSOLVAN [Concomitant]
  4. MUCODYNE [Concomitant]
  5. MONTELUKAST SODIUM [Concomitant]
  6. UNIPHYL [Concomitant]
  7. FLUTIDE [Concomitant]
  8. SEREVENT [Concomitant]

REACTIONS (1)
  - ANAPHYLACTIC SHOCK [None]
